FAERS Safety Report 12908154 (Version 1)
Quarter: 2016Q4

REPORT INFORMATION
  Report Type: Report from Study
  Country: CA (occurrence: CA)
  Receive Date: 20161103
  Receipt Date: 20161103
  Transmission Date: 20170207
  Serious: Yes (Hospitalization, Other)
  Sender: FDA-Public Use
  Company Number: CA-AMGEN-CANSL2016048186

PATIENT
  Age: 72 Year
  Sex: Male

DRUGS (2)
  1. ENBREL [Suspect]
     Active Substance: ETANERCEPT
     Indication: PSORIASIS
     Dosage: UNK
     Route: 065
  2. ENBREL [Suspect]
     Active Substance: ETANERCEPT
     Dosage: 50 MG, 2 TIMES/WK
     Route: 058
     Dates: start: 20100210, end: 201604

REACTIONS (10)
  - Hypersensitivity [Unknown]
  - Disturbance in attention [Not Recovered/Not Resolved]
  - Tongue discolouration [Unknown]
  - Off label use [Unknown]
  - Psoriasis [Unknown]
  - Rash generalised [Unknown]
  - Dysphagia [Unknown]
  - Dizziness [Unknown]
  - Drug effect incomplete [Unknown]
  - Pain [Unknown]
